FAERS Safety Report 11797402 (Version 1)
Quarter: 2015Q4

REPORT INFORMATION
  Report Type: Spontaneous
  Country: DE (occurrence: DE)
  Receive Date: 20151203
  Receipt Date: 20151203
  Transmission Date: 20160305
  Serious: Yes (Congenital Anomaly, Other)
  Sender: FDA-Public Use
  Company Number: DE-SA-2015SA193031

PATIENT
  Age: 1 Day
  Sex: Female
  Weight: 1.56 kg

DRUGS (6)
  1. PREDNISOLONE. [Suspect]
     Active Substance: PREDNISOLONE
     Indication: MATERNAL EXPOSURE TIMING UNSPECIFIED
     Route: 064
     Dates: start: 20141004, end: 20150423
  2. ARAVA [Suspect]
     Active Substance: LEFLUNOMIDE
     Indication: MATERNAL EXPOSURE TIMING UNSPECIFIED
     Route: 064
     Dates: start: 20141004, end: 20141112
  3. CHARCOAL, ACTIVATED [Concomitant]
     Active Substance: ACTIVATED CHARCOAL
     Indication: DETOXIFICATION
     Route: 064
     Dates: start: 20141129, end: 20141212
  4. COLESTYRAMINE [Concomitant]
     Active Substance: CHOLESTYRAMINE
     Indication: DETOXIFICATION
     Dosage: IN WEEK 11: LEFLUNOMIDE CONCENTRATION WAS 0.01 MG/L
     Route: 064
  5. FOLIO [Concomitant]
     Active Substance: FOLIC ACID
     Indication: PROPHYLAXIS OF NEURAL TUBE DEFECT
     Route: 064
  6. LODOTRA [Suspect]
     Active Substance: PREDNISONE
     Indication: MATERNAL EXPOSURE TIMING UNSPECIFIED
     Route: 064
     Dates: start: 20150424, end: 20150530

REACTIONS (6)
  - Tracheo-oesophageal fistula [Recovered/Resolved with Sequelae]
  - Foetal exposure during pregnancy [Unknown]
  - Premature baby [Recovering/Resolving]
  - Oesophageal atresia [Recovered/Resolved with Sequelae]
  - Intraventricular haemorrhage neonatal [Unknown]
  - Small for dates baby [Recovering/Resolving]

NARRATIVE: CASE EVENT DATE: 20150530
